FAERS Safety Report 18039907 (Version 2)
Quarter: 2020Q4

REPORT INFORMATION
  Report Type: Report from Study
  Country: None (occurrence: US)
  Receive Date: 20200717
  Receipt Date: 20201201
  Transmission Date: 20210113
  Serious: No
  Sender: FDA-Public Use
  Company Number: US-ABBVIE-20K-163-3479682-00

PATIENT
  Sex: Female
  Weight: 76.27 kg

DRUGS (7)
  1. HUMIRA [Suspect]
     Active Substance: ADALIMUMAB
  2. HUMIRA [Suspect]
     Active Substance: ADALIMUMAB
  3. PREDNISONE. [Concomitant]
     Active Substance: PREDNISONE
  4. PREDNISONE. [Concomitant]
     Active Substance: PREDNISONE
  5. HUMIRA [Suspect]
     Active Substance: ADALIMUMAB
     Indication: COLITIS ULCERATIVE
     Route: 058
  6. PREDNISONE. [Concomitant]
     Active Substance: PREDNISONE
     Indication: PRODUCT USED FOR UNKNOWN INDICATION
  7. HUMIRA [Suspect]
     Active Substance: ADALIMUMAB
     Indication: COLITIS ULCERATIVE
     Dosage: CITRATE FREE
     Route: 058
     Dates: end: 20200807

REACTIONS (4)
  - Stoma site haemorrhage [Unknown]
  - Colitis ulcerative [Not Recovered/Not Resolved]
  - Fistula [Recovering/Resolving]
  - Inflammation [Unknown]
